FAERS Safety Report 9300606 (Version 1)
Quarter: 2013Q2

REPORT INFORMATION
  Report Type: Spontaneous
  Country: US (occurrence: None)
  Receive Date: 20130520
  Receipt Date: 20130520
  Transmission Date: 20140414
  Serious: Yes (Death)
  Sender: FDA-Public Use
  Company Number: None

PATIENT
  Age: 67 Year
  Sex: Male

DRUGS (1)
  1. SILDENAFIL CITRATE 20MG PFIZER [Suspect]
     Indication: COR PULMONALE CHRONIC
     Dates: start: 20130215

REACTIONS (1)
  - Fall [None]
